FAERS Safety Report 9057812 (Version 1)
Quarter: 2013Q1

REPORT INFORMATION
  Report Type: Spontaneous
  Country: US (occurrence: US)
  Receive Date: 20130204
  Receipt Date: 20130204
  Transmission Date: 20140127
  Serious: Yes (Other)
  Sender: FDA-Public Use
  Company Number: US-BAYER-2013-011797

PATIENT
  Sex: 0

DRUGS (3)
  1. BRONKAID [Suspect]
     Dosage: UNK
  2. PREDNISONE [Concomitant]
  3. LISINOPRIL [Concomitant]

REACTIONS (7)
  - Bronchitis [None]
  - Back pain [None]
  - Dyspnoea [None]
  - Headache [None]
  - Blood pressure increased [None]
  - Fatigue [None]
  - Poor quality sleep [None]
